FAERS Safety Report 8433870-0 (Version None)
Quarter: 2012Q2

REPORT INFORMATION
  Report Type: 
  Country: None (occurrence: None)
  Receive Date: 20120613
  Receipt Date: 20120607
  Transmission Date: 20120825
  Serious: Yes (Other)
  Sender: FDA-Public Use
  Company Number: US-PFIZER INC-2012138349

PATIENT
  Sex: Female

DRUGS (1)
  1. XANAX [Suspect]
     Dosage: UNK
     Dates: start: 19790101

REACTIONS (6)
  - CROHN'S DISEASE [None]
  - DEHYDRATION [None]
  - DRUG DEPENDENCE [None]
  - DIARRHOEA [None]
  - MALAISE [None]
  - BLOOD PRESSURE INCREASED [None]
